FAERS Safety Report 21040181 (Version 13)
Quarter: 2023Q1

REPORT INFORMATION
  Report Type: Report from Study
  Country: US (occurrence: US)
  Receive Date: 20220704
  Receipt Date: 20230308
  Transmission Date: 20230418
  Serious: No
  Sender: FDA-Public Use
  Company Number: US-NOVARTISTESTPH-NVSC2022US151555

PATIENT
  Age: 54 Year
  Sex: Male
  Weight: 131.52 kg

DRUGS (10)
  1. TREPROSTINIL [Suspect]
     Active Substance: TREPROSTINIL
     Indication: Pulmonary arterial hypertension
     Dosage: 3 NG/KG/MIN, CONT (STRENGTH 2.5 MG/ML)
     Route: 058
     Dates: start: 20220610
  2. TREPROSTINIL [Suspect]
     Active Substance: TREPROSTINIL
     Dosage: 17 NG/KG/MIN, CONT (STRENGTH 2.5 MG/ML)
     Route: 058
  3. TREPROSTINIL [Suspect]
     Active Substance: TREPROSTINIL
     Dosage: 20 NG/KG/MIN, CONT (STRENGTH: 5 MG/ML)
     Route: 058
  4. TREPROSTINIL [Suspect]
     Active Substance: TREPROSTINIL
     Dosage: 32 NG/KG/ MIN, CONT(STRENGTH 5MG/ML)
     Route: 058
  5. TREPROSTINIL [Suspect]
     Active Substance: TREPROSTINIL
     Dosage: 41 NG/KG/MIN, CONT
     Route: 058
  6. TREPROSTINIL [Suspect]
     Active Substance: TREPROSTINIL
     Dosage: 52 NG/KG/ MIN, CONT
     Route: 058
  7. LETAIRIS [Concomitant]
     Active Substance: AMBRISENTAN
     Indication: Product used for unknown indication
     Dosage: UNK
     Route: 065
  8. UPTRAVI [Concomitant]
     Active Substance: SELEXIPAG
     Indication: Product used for unknown indication
     Dosage: UNK
     Route: 065
  9. TADALAFIL [Concomitant]
     Active Substance: TADALAFIL
     Indication: Product used for unknown indication
     Dosage: UNK
     Route: 065
  10. AMBRISENTAN [Concomitant]
     Active Substance: AMBRISENTAN
     Indication: Product used for unknown indication
     Dosage: UNK
     Route: 065

REACTIONS (15)
  - Feeling abnormal [Unknown]
  - SARS-CoV-2 test positive [Unknown]
  - Hypersensitivity [Unknown]
  - Pain [Unknown]
  - Erythema [Unknown]
  - Decubitus ulcer [Unknown]
  - Injection site extravasation [Unknown]
  - Infusion site pain [Unknown]
  - Infusion site erythema [Unknown]
  - Injection site erythema [Unknown]
  - Injection site pain [Unknown]
  - Blood pressure decreased [Not Recovered/Not Resolved]
  - Nausea [Unknown]
  - Wrong technique in device usage process [Unknown]
  - Incorrect dose administered [Unknown]

NARRATIVE: CASE EVENT DATE: 20221112
